FAERS Safety Report 8160750-0 (Version None)
Quarter: 2012Q1

REPORT INFORMATION
  Report Type: 
  Country: None (occurrence: None)
  Receive Date: 20120223
  Receipt Date: 20120214
  Transmission Date: 20120608
  Serious: Yes (Other)
  Sender: FDA-Public Use
  Company Number: PHHY2012BR013147

PATIENT
  Sex: Female
  Weight: 46 kg

DRUGS (8)
  1. EXELON [Suspect]
     Indication: DEMENTIA ALZHEIMER'S TYPE
     Dosage: 1 DF, DAILY
     Route: 048
  2. PRADAXA [Suspect]
     Indication: CARDIAC DISORDER
     Dosage: UNK
  3. ATACAND HCT [Concomitant]
     Indication: BLOOD PRESSURE ABNORMAL
     Dosage: 1 DF, QD
     Route: 048
  4. EXELON [Suspect]
     Dosage: 1 DF, BID
     Route: 048
  5. EXELON [Suspect]
     Dosage: 3 MG, BID
     Route: 048
  6. EXELON [Suspect]
     Dosage: 3 MG, QD
     Route: 048
     Dates: end: 20111201
  7. MANTIDAN [Concomitant]
     Indication: PARKINSON'S DISEASE
     Dosage: 1 DF, QD
     Route: 048
     Dates: end: 20111001
  8. DIGOXIN [Concomitant]
     Indication: BLOOD PRESSURE ABNORMAL
     Dosage: 1 DF, QOD
     Route: 048

REACTIONS (15)
  - PAIN [None]
  - FATIGUE [None]
  - VOMITING [None]
  - DEMENTIA ALZHEIMER'S TYPE [None]
  - DIARRHOEA [None]
  - CONFUSIONAL STATE [None]
  - HEAD DISCOMFORT [None]
  - MALAISE [None]
  - ASTHENIA [None]
  - HEADACHE [None]
  - THROMBOSIS [None]
  - MEMORY IMPAIRMENT [None]
  - DECREASED APPETITE [None]
  - NAUSEA [None]
  - CARDIOMEGALY [None]
